FAERS Safety Report 14757064 (Version 2)
Quarter: 2018Q2

REPORT INFORMATION
  Report Type: Spontaneous
  Country: FR (occurrence: FR)
  Receive Date: 20180413
  Receipt Date: 20180511
  Transmission Date: 20180711
  Serious: Yes (Disabling, Other)
  Sender: FDA-Public Use
  Company Number: PHHY2018FR061700

PATIENT
  Age: 42 Year
  Sex: Male
  Weight: 90 kg

DRUGS (1)
  1. COSENTYX [Suspect]
     Active Substance: SECUKINUMAB
     Indication: PSORIASIS
     Dosage: 300 MG, UNK
     Route: 058
     Dates: start: 20170424

REACTIONS (6)
  - Abdominal pain [Unknown]
  - Henoch-Schonlein purpura [Recovering/Resolving]
  - Hypersensitivity vasculitis [Unknown]
  - Colitis [Unknown]
  - Purpura [Unknown]
  - Arthralgia [Unknown]

NARRATIVE: CASE EVENT DATE: 20170731
